FAERS Safety Report 9663663 (Version 1)
Quarter: 2013Q4

REPORT INFORMATION
  Report Type: Spontaneous
  Country: AR (occurrence: AR)
  Receive Date: 20131101
  Receipt Date: 20131101
  Transmission Date: 20140711
  Serious: Yes (Other)
  Sender: FDA-Public Use
  Company Number: PHHY2013AR123497

PATIENT
  Sex: Female

DRUGS (6)
  1. ACLASTA [Suspect]
     Indication: OSTEOPOROSIS
     Dosage: UNK, ANNUALLY
     Route: 042
     Dates: start: 2003
  2. ACLASTA [Suspect]
     Dosage: UNK, ANNUALLY
     Route: 042
     Dates: start: 2004
  3. ACLASTA [Suspect]
     Dosage: UNK, ANNUALLY
     Route: 042
     Dates: start: 2005
  4. ACLASTA [Suspect]
     Dosage: UNK, ANNUALLY
     Route: 042
     Dates: start: 2006
  5. ACLASTA [Suspect]
     Dosage: UNK, ANNUALLY
     Route: 042
     Dates: start: 2007
  6. CALCIUM [Concomitant]

REACTIONS (1)
  - Maculopathy [Not Recovered/Not Resolved]
